FAERS Safety Report 20315604 (Version 1)
Quarter: 2022Q1

REPORT INFORMATION
  Report Type: Spontaneous
  Country: US (occurrence: None)
  Receive Date: 20220110
  Receipt Date: 20220110
  Transmission Date: 20220423
  Serious: No
  Sender: FDA-Public Use
  Company Number: US-ROCHE-2832453

PATIENT
  Sex: Female

DRUGS (1)
  1. RITUXAN [Suspect]
     Active Substance: RITUXIMAB
     Indication: Rheumatoid arthritis
     Dosage: 10 MG/ML, 50ML/VIAL
     Route: 041
     Dates: start: 20210429

REACTIONS (2)
  - Joint swelling [Unknown]
  - Arthralgia [Unknown]
